FAERS Safety Report 4703446-7 (Version None)
Quarter: 2005Q2

REPORT INFORMATION
  Report Type: 
  Country: None (occurrence: None)
  Receive Date: 20050629
  Receipt Date: 20050614
  Transmission Date: 20051028
  Serious: Yes (Hospitalization, Other)
  Sender: FDA-Public Use
  Company Number: USA0506100541

PATIENT
  Age: 81 Year
  Sex: Female

DRUGS (2)
  1. FORTEO [Suspect]
     Indication: OSTEOARTHRITIS
     Dosage: 20 UG IN THE EVENING
     Dates: start: 20041001
  2. SYNVISC (HYALURONATE SODIUM) [Concomitant]

REACTIONS (11)
  - ARTHRALGIA [None]
  - ASTHENIA [None]
  - BACK PAIN [None]
  - DEVICE FAILURE [None]
  - DRUG DOSE OMISSION [None]
  - FLANK PAIN [None]
  - HIP FRACTURE [None]
  - HYPOAESTHESIA [None]
  - LOWER LIMB DEFORMITY [None]
  - PARAESTHESIA [None]
  - PHARMACEUTICAL PRODUCT COMPLAINT [None]
